FAERS Safety Report 23288384 (Version 1)
Quarter: 2023Q4

REPORT INFORMATION
  Report Type: Report from Study
  Country: US (occurrence: US)
  Receive Date: 20231212
  Receipt Date: 20231212
  Transmission Date: 20240109
  Serious: Yes (Hospitalization, Other)
  Sender: FDA-Public Use
  Company Number: US-ABBVIE-5530949

PATIENT
  Sex: Male

DRUGS (1)
  1. SKYRIZI [Suspect]
     Active Substance: RISANKIZUMAB-RZAA
     Indication: Crohn^s disease
     Route: 058
     Dates: start: 20230817

REACTIONS (6)
  - Malignant melanoma [Not Recovered/Not Resolved]
  - Cerebellar tumour [Unknown]
  - Lung neoplasm [Unknown]
  - Fall [Unknown]
  - Brain lobectomy [Unknown]
  - Hemiparesis [Unknown]

NARRATIVE: CASE EVENT DATE: 20230101
